FAERS Safety Report 24559727 (Version 1)
Quarter: 2024Q4

REPORT INFORMATION
  Report Type: Report from Study
  Country: JP (occurrence: JP)
  Receive Date: 20241029
  Receipt Date: 20241029
  Transmission Date: 20250115
  Serious: Yes (Other)
  Sender: ROCHE
  Company Number: JP-ROCHE-10000114162

PATIENT

DRUGS (5)
  1. BEVACIZUMAB [Suspect]
     Active Substance: BEVACIZUMAB
     Indication: Rectal cancer
     Dosage: ON DAYS 1 AND 15
     Route: 065
  2. CAPECITABINE [Suspect]
     Active Substance: CAPECITABINE
     Indication: Rectal cancer
     Dosage: ON DAYS 1-14,
     Route: 048
  3. OXALIPLATIN [Suspect]
     Active Substance: OXALIPLATIN
     Indication: Rectal cancer
     Dosage: ON DAYS 1, 8, 15, AND 22
     Route: 065
  4. OXALIPLATIN [Suspect]
     Active Substance: OXALIPLATIN
     Dosage: ON DAY 1, AND A CHEMOTHERAPY-FREE INTERVAL ON DAYS 15-21
     Route: 042
  5. TS-1 [Suspect]
     Active Substance: GIMERACIL\OTERACIL POTASSIUM\TEGAFUR
     Indication: Rectal cancer
     Dosage: ON DAYS 1-5, 8-12, 15-19, AND 22-26
     Route: 048

REACTIONS (7)
  - Diarrhoea [Unknown]
  - Enterocolitis [Unknown]
  - Decreased appetite [Unknown]
  - Nausea [Unknown]
  - Hepatic function abnormal [Unknown]
  - Rash [Unknown]
  - Stomatitis [Unknown]
